FAERS Safety Report 16233771 (Version 1)
Quarter: 2019Q2

REPORT INFORMATION
  Report Type: Spontaneous
  Country: US (occurrence: US)
  Receive Date: 20190424
  Receipt Date: 20190424
  Transmission Date: 20190711
  Serious: No
  Sender: FDA-Public Use
  Company Number: US-BAYER-2019-082894

PATIENT
  Sex: Male
  Weight: 116 kg

DRUGS (5)
  1. LISINOPRIL. [Concomitant]
     Active Substance: LISINOPRIL
     Dosage: UNK UNK, UNK
  2. FINASTERIDE. [Concomitant]
     Active Substance: FINASTERIDE
     Dosage: UNK UNK, UNK
  3. ALEVE [Suspect]
     Active Substance: NAPROXEN SODIUM
     Indication: PAIN
     Dosage: 1 DF, QD
     Route: 048
  4. BAYER LOW DOSE [Suspect]
     Active Substance: ASPIRIN
     Indication: CEREBROVASCULAR ACCIDENT PROPHYLAXIS
  5. BAYER LOW DOSE [Suspect]
     Active Substance: ASPIRIN
     Indication: PROPHYLAXIS
     Dosage: 1 DF, QD
     Route: 048

REACTIONS (3)
  - Product packaging difficult to open [None]
  - Product use in unapproved indication [Unknown]
  - Product use issue [None]
